FAERS Safety Report 6900195-1 (Version None)
Quarter: 2010Q3

REPORT INFORMATION
  Report Type: 
  Country: None (occurrence: None)
  Receive Date: 20100803
  Receipt Date: 20100720
  Transmission Date: 20110219
  Serious: Yes (Hospitalization)
  Sender: FDA-Public Use
  Company Number: JP-ELI_LILLY_AND_COMPANY-JP201007001447

PATIENT
  Sex: Female
  Weight: 49 kg

DRUGS (13)
  1. CYMBALTA [Suspect]
     Indication: DEPRESSION
     Dosage: 20 MG, DAILY (1/D)
     Route: 048
     Dates: start: 20100624, end: 20100701
  2. CYMBALTA [Suspect]
     Dosage: 40 MG, DAILY (1/D)
     Route: 048
     Dates: start: 20100702, end: 20100707
  3. SORENTMIN [Concomitant]
     Dosage: 0.25 MG, DAILY (1/D)
     Route: 048
     Dates: start: 20100624
  4. SILECE [Concomitant]
     Dosage: 1 MG, DAILY (1/D)
     Route: 048
     Dates: start: 20100624
  5. LANDSEN [Concomitant]
     Dosage: 0.5 MG, DAILY (1/D)
     Route: 048
     Dates: start: 20100624, end: 20100627
  6. CONSTAN [Concomitant]
     Dosage: 0.4 MG, 3/D
     Route: 048
     Dates: start: 20100624
  7. MEILAX [Concomitant]
     Dosage: 1 MG, DAILY (1/D)
     Route: 048
     Dates: start: 20100629
  8. RESLIN [Concomitant]
     Dosage: 25 MG, DAILY (1/D)
     Route: 048
     Dates: start: 20100706, end: 20100712
  9. LORAZEPAM [Concomitant]
     Dosage: 0.5 MG, AS NEEDED
     Route: 048
     Dates: start: 20100624
  10. CONTOMIN [Concomitant]
     Dosage: 12.5 MG, AS NEEDED
     Route: 048
     Dates: start: 20100629
  11. TSUKUSHI AM [Concomitant]
     Dosage: 1 D/F, AS NEEDED
     Route: 048
     Dates: start: 20100701
  12. SELBEX [Concomitant]
     Dosage: 1 D/F, AS NEEDED
     Route: 048
     Dates: start: 20100712
  13. MYSLEE [Concomitant]
     Dosage: 5 MG, AS NEEDED
     Route: 048
     Dates: start: 20100624

REACTIONS (1)
  - HEPATIC FUNCTION ABNORMAL [None]
